FAERS Safety Report 17188316 (Version 1)
Quarter: 2019Q4

REPORT INFORMATION
  Report Type: Spontaneous
  Country: DE (occurrence: DE)
  Receive Date: 20191221
  Receipt Date: 20191221
  Transmission Date: 20200122
  Serious: Yes (Other)
  Sender: FDA-Public Use
  Company Number: DE-BAXTER-2018BAX006005

PATIENT
  Age: 4 Year
  Sex: Male

DRUGS (17)
  1. ENDOXAN LYOPHILISAT [Suspect]
     Active Substance: CYCLOPHOSPHAMIDE
     Indication: CHOROID PLEXUS CARCINOMA
     Route: 050
  2. ETOPOSIDE. [Suspect]
     Active Substance: ETOPOSIDE
     Indication: CHOROID PLEXUS CARCINOMA
     Dosage: UNK
     Route: 062
  3. VINCRISTINE [Suspect]
     Active Substance: VINCRISTINE
     Indication: LI-FRAUMENI SYNDROME
     Route: 062
  4. PEGYLATED LIPOSOMAL IRINOTECAN [Suspect]
     Active Substance: IRINOTECAN HYDROCHLORIDE
     Indication: CHOROID PLEXUS CARCINOMA
     Route: 065
  5. TEMOZOLOMIDE. [Suspect]
     Active Substance: TEMOZOLOMIDE
     Indication: CHOROID PLEXUS CARCINOMA
     Route: 065
  6. ETOPOSIDE. [Suspect]
     Active Substance: ETOPOSIDE
     Indication: LI-FRAUMENI SYNDROME
     Dosage: UNK
     Route: 062
  7. VINCRISTINE [Suspect]
     Active Substance: VINCRISTINE
     Indication: CHOROID PLEXUS CARCINOMA
     Route: 050
  8. IRINOTECAN [Suspect]
     Active Substance: IRINOTECAN
     Route: 065
  9. TEMOZOLOMIDE. [Suspect]
     Active Substance: TEMOZOLOMIDE
     Route: 037
  10. TOPOTECAN [Suspect]
     Active Substance: TOPOTECAN HYDROCHLORIDE
     Route: 065
  11. ENDOXAN LYOPHILISAT [Suspect]
     Active Substance: CYCLOPHOSPHAMIDE
     Indication: LI-FRAUMENI SYNDROME
     Route: 065
  12. TOPOTECAN [Suspect]
     Active Substance: TOPOTECAN HYDROCHLORIDE
     Indication: CHOROID PLEXUS CARCINOMA
     Route: 037
  13. TOPOTECAN [Suspect]
     Active Substance: TOPOTECAN HYDROCHLORIDE
     Route: 037
  14. CYCLOPHOSPHAMIDE. [Suspect]
     Active Substance: CYCLOPHOSPHAMIDE
     Indication: LI-FRAUMENI SYNDROME
     Route: 062
  15. TEMOZOLOMIDE. [Suspect]
     Active Substance: TEMOZOLOMIDE
     Route: 065
  16. VINCRISTINE [Suspect]
     Active Substance: VINCRISTINE
     Route: 065
  17. IRINOTECAN [Suspect]
     Active Substance: IRINOTECAN
     Indication: CHOROID PLEXUS CARCINOMA
     Route: 065

REACTIONS (4)
  - Malignant neoplasm progression [Unknown]
  - Product use in unapproved indication [Unknown]
  - Li-Fraumeni syndrome [Unknown]
  - Lymphopenia [Unknown]
